FAERS Safety Report 4505747-4 (Version None)
Quarter: 2004Q4

REPORT INFORMATION
  Report Type: 
  Country: None (occurrence: None)
  Receive Date: 20041119
  Receipt Date: 20001023
  Transmission Date: 20050328
  Serious: Yes (Hospitalization)
  Sender: FDA-Public Use
  Company Number: FR-GLAXOSMITHKLINE-B0090550A

PATIENT
  Age: 39 Year
  Sex: Female

DRUGS (2)
  1. EPIVIR [Suspect]
     Indication: HIV INFECTION
     Dosage: 2UNIT PER DAY
     Route: 048
     Dates: start: 19960923
  2. STAVUDINE [Suspect]
     Indication: HIV INFECTION
     Dosage: 2UNIT PER DAY
     Route: 048
     Dates: start: 19990614

REACTIONS (2)
  - LOWER LIMB FRACTURE [None]
  - OSTEOPOROSIS [None]
